FAERS Safety Report 21036401 (Version 4)
Quarter: 2023Q1

REPORT INFORMATION
  Report Type: Spontaneous
  Country: US (occurrence: US)
  Receive Date: 20220702
  Receipt Date: 20230310
  Transmission Date: 20230418
  Serious: Yes (Hospitalization, Other)
  Sender: FDA-Public Use
  Company Number: US-UNITED THERAPEUTICS-UNT-2022-012816

PATIENT
  Age: 71 Year
  Sex: Female
  Weight: 79.365 kg

DRUGS (19)
  1. TYVASO [Suspect]
     Active Substance: TREPROSTINIL
     Indication: Pulmonary hypertension
     Dosage: UNK
     Dates: start: 202102
  2. TYVASO [Suspect]
     Active Substance: TREPROSTINIL
     Indication: Interstitial lung disease
     Dosage: 18-54 ?G, QID
     Dates: end: 20220603
  3. TYVASO [Suspect]
     Active Substance: TREPROSTINIL
     Indication: Rheumatoid arthritis
     Dosage: 18 ?G (RESTARTED)
     Dates: start: 202206, end: 202206
  4. TYVASO [Suspect]
     Active Substance: TREPROSTINIL
     Dosage: 54 ?G, QID
     Dates: start: 202206, end: 2022
  5. TYVASO [Suspect]
     Active Substance: TREPROSTINIL
     Dosage: 18 ?G, QID
     Dates: start: 2022
  6. TYVASO [Suspect]
     Active Substance: TREPROSTINIL
     Dosage: 72 ?G, QID
     Dates: start: 20221227
  7. TYVASO [Suspect]
     Active Substance: TREPROSTINIL
     Dosage: 36 ?G, QID
     Dates: start: 202206
  8. VITAMIN D3 [Concomitant]
     Active Substance: CHOLECALCIFEROL
     Indication: Product used for unknown indication
     Dosage: 50 ?G (2000 UNIT)
     Route: 048
  9. DIETARY SUPPLEMENT\PROBIOTICS [Concomitant]
     Active Substance: DIETARY SUPPLEMENT\PROBIOTICS
     Indication: Product used for unknown indication
     Dosage: UNK
     Route: 048
  10. SYNTHROID [Concomitant]
     Active Substance: LEVOTHYROXINE SODIUM
     Indication: Product used for unknown indication
     Dosage: 88 ?G, QD (BEFORE BREAKFAST)
     Route: 048
     Dates: start: 20200812
  11. KLOR-CON M10 [Concomitant]
     Active Substance: POTASSIUM CHLORIDE
     Indication: Supplementation therapy
     Dosage: 10 MEQ, QD
     Route: 048
     Dates: start: 20210922
  12. DELTASONE [Concomitant]
     Active Substance: PREDNISONE
     Indication: Product used for unknown indication
     Dosage: 10 MG, QD (0.5 TABLET)
     Route: 048
     Dates: start: 20200914
  13. DELTASONE [Concomitant]
     Active Substance: PREDNISONE
     Dosage: 7MG, QD
     Route: 048
  14. HERBALS\TURMERIC [Concomitant]
     Active Substance: HERBALS\TURMERIC
     Indication: Product used for unknown indication
     Dosage: UNK, BID
     Route: 048
  15. HYDRODIURIL [Concomitant]
     Active Substance: HYDROCHLOROTHIAZIDE
     Indication: Product used for unknown indication
     Dosage: 25 MG
     Route: 048
  16. HYDRODIURIL [Concomitant]
     Active Substance: HYDROCHLOROTHIAZIDE
     Dosage: 25 MG, QD (RESTART)
     Route: 048
     Dates: start: 20220628
  17. PLAQUENIL [Concomitant]
     Active Substance: HYDROXYCHLOROQUINE SULFATE
     Indication: Product used for unknown indication
     Dosage: 200 MG, BID
     Route: 048
  18. PRELONE [Concomitant]
     Active Substance: PREDNISOLONE
     Indication: Product used for unknown indication
     Dosage: 15MG/ML SYRUP (1MG/KG) QD
     Route: 048
  19. NEXIUM [Concomitant]
     Active Substance: ESOMEPRAZOLE MAGNESIUM
     Indication: Product used for unknown indication
     Dosage: 40 MG, QD (EVERY MORNING BEFORE BREAKFAST)
     Route: 048

REACTIONS (38)
  - Gastrointestinal haemorrhage [Unknown]
  - Breast pain [Unknown]
  - Haematochezia [Unknown]
  - Diverticulitis intestinal haemorrhagic [Unknown]
  - Syncope [Unknown]
  - Rib fracture [Recovered/Resolved]
  - Mitral valve incompetence [Unknown]
  - Aortic valve incompetence [Unknown]
  - Deafness [Unknown]
  - Arteriosclerosis coronary artery [Unknown]
  - Rheumatoid arthritis [Unknown]
  - Interstitial lung disease [Unknown]
  - Cough [Unknown]
  - Contusion [Unknown]
  - Dry mouth [Unknown]
  - Dyspnoea [Unknown]
  - Blood pressure increased [Unknown]
  - Polyp [Unknown]
  - Iron deficiency [Unknown]
  - Oxygen saturation decreased [Unknown]
  - Supraventricular extrasystoles [Unknown]
  - Fatigue [Unknown]
  - Nasal congestion [Unknown]
  - Wheezing [Unknown]
  - Chest pain [Unknown]
  - Headache [Unknown]
  - Dizziness [Unknown]
  - Nervousness [Unknown]
  - Anxiety [Unknown]
  - Sleep disorder [Unknown]
  - Rales [Unknown]
  - Hiatus hernia [Unknown]
  - Epistaxis [Unknown]
  - Left atrial enlargement [Unknown]
  - Right ventricular enlargement [Unknown]
  - Oedema peripheral [Unknown]
  - Increased tendency to bruise [Unknown]
  - Off label use [Unknown]

NARRATIVE: CASE EVENT DATE: 20210319
